FAERS Safety Report 22617894 (Version 1)
Quarter: 2023Q2

REPORT INFORMATION
  Report Type: Spontaneous
  Country: US (occurrence: US)
  Receive Date: 20230620
  Receipt Date: 20230620
  Transmission Date: 20230721
  Serious: No
  Sender: FDA-Public Use
  Company Number: US-MTPC-MTDA2023-0011547

PATIENT
  Sex: Male

DRUGS (1)
  1. RADICAVA [Suspect]
     Active Substance: EDARAVONE
     Indication: Amyotrophic lateral sclerosis
     Dosage: UNK
     Route: 042
     Dates: start: 20170904

REACTIONS (3)
  - Paraesthesia [Unknown]
  - Asthenia [Unknown]
  - Fatigue [Unknown]
